FAERS Safety Report 4997447-1 (Version None)
Quarter: 2006Q2

REPORT INFORMATION
  Report Type: 
  Country: None (occurrence: None)
  Receive Date: 20060509
  Receipt Date: 20050810
  Transmission Date: 20061013
  Serious: Yes (Hospitalization)
  Sender: FDA-Public Use
  Company Number: US-MERCK-0508USA02086

PATIENT
  Age: 67 Year
  Sex: Female
  Weight: 77 kg

DRUGS (4)
  1. VIOXX [Suspect]
     Indication: HIP SURGERY
     Route: 048
     Dates: start: 20000308, end: 20020101
  2. VIOXX [Suspect]
     Indication: LUMBAR SPINAL STENOSIS
     Route: 048
     Dates: start: 20000308, end: 20020101
  3. [THERAPY UNSPECIFIED] [Concomitant]
     Indication: HYPERTHYROIDISM
     Route: 065
  4. ASPIRIN [Concomitant]
     Route: 065

REACTIONS (8)
  - ATRIAL FIBRILLATION [None]
  - ATRIAL FLUTTER [None]
  - BLOOD POTASSIUM INCREASED [None]
  - CEREBROVASCULAR ACCIDENT [None]
  - EMBOLIC STROKE [None]
  - HYPERTENSION [None]
  - SINUS BRADYCARDIA [None]
  - SUPRAVENTRICULAR TACHYCARDIA [None]
